FAERS Safety Report 5827763-2 (Version None)
Quarter: 2008Q3

REPORT INFORMATION
  Report Type: 
  Country: None (occurrence: None)
  Receive Date: 20080730
  Receipt Date: 20080722
  Transmission Date: 20090109
  Serious: Yes (Death)
  Sender: FDA-Public Use
  Company Number: JP-PFIZER INC-2008040073

PATIENT
  Sex: Female

DRUGS (7)
  1. LIPITOR [Suspect]
     Indication: HYPERLIPIDAEMIA
     Route: 048
     Dates: start: 20010510, end: 20080408
  2. AMLODIPINE BESYLATE [Suspect]
     Indication: HYPERTENSION
     Route: 048
     Dates: start: 19980925, end: 20080408
  3. AMLODIPINE BESYLATE [Suspect]
     Route: 048
     Dates: start: 20080423, end: 20080508
  4. BUFFERIN [Concomitant]
     Indication: CEREBRAL THROMBOSIS
     Route: 048
     Dates: start: 20011001, end: 20080408
  5. BUFFERIN [Concomitant]
     Route: 048
     Dates: start: 20080423, end: 20080508
  6. BETAMETHASONE VALERATE [Concomitant]
     Dates: start: 20020201, end: 20080319
  7. FLUCORT [Concomitant]
     Dates: start: 20080116, end: 20080315

REACTIONS (8)
  - CEREBRAL THROMBOSIS [None]
  - CONSTIPATION [None]
  - DYSGEUSIA [None]
  - HEPATIC NEOPLASM MALIGNANT [None]
  - INSOMNIA [None]
  - MOVEMENT DISORDER [None]
  - RHABDOMYOLYSIS [None]
  - THIRST [None]
